FAERS Safety Report 7516040-X (Version None)
Quarter: 2011Q2

REPORT INFORMATION
  Report Type: 
  Country: None (occurrence: None)
  Receive Date: 20110601
  Receipt Date: 20110526
  Transmission Date: 20111010
  Serious: Yes (Hospitalization, Other)
  Sender: FDA-Public Use
  Company Number: US-ROCHE-438833

PATIENT
  Sex: Male
  Weight: 81.6 kg

DRUGS (4)
  1. ACCUTANE [Suspect]
     Route: 048
     Dates: start: 19970601, end: 19971201
  2. ACCUTANE [Suspect]
     Dosage: ISOTRETINOIN 40 MG CAPSULES ONE PER DAY DISPENSED ON 17 SEPTEMBER 2002
     Route: 048
     Dates: start: 20020701, end: 20030101
  3. ACCUTANE [Suspect]
     Route: 048
     Dates: start: 20050427
  4. ACCUTANE [Suspect]
     Indication: ACNE
     Route: 048
     Dates: start: 19940101, end: 19940101

REACTIONS (18)
  - COLITIS [None]
  - GENERALISED ANXIETY DISORDER [None]
  - IRRITABLE BOWEL SYNDROME [None]
  - CROHN'S DISEASE [None]
  - INTERVERTEBRAL DISC DEGENERATION [None]
  - ATTENTION DEFICIT/HYPERACTIVITY DISORDER [None]
  - UPPER RESPIRATORY TRACT INFECTION [None]
  - ARTHRITIS [None]
  - INFLAMMATORY BOWEL DISEASE [None]
  - DEPRESSION [None]
  - PERINEAL ABSCESS [None]
  - ARTHRALGIA [None]
  - SPINAL OSTEOARTHRITIS [None]
  - OROPHARYNGEAL PAIN [None]
  - ARTHRITIS REACTIVE [None]
  - OSTEOPOROSIS [None]
  - COUGH [None]
  - SEASONAL ALLERGY [None]
